FAERS Safety Report 5035320-3 (Version None)
Quarter: 2006Q2

REPORT INFORMATION
  Report Type: 
  Country: None (occurrence: None)
  Receive Date: 20060622
  Receipt Date: 20060605
  Transmission Date: 20061013
  Serious: Yes (Hospitalization)
  Sender: FDA-Public Use
  Company Number: FR200606001018

PATIENT
  Age: 86 Year
  Sex: Male

DRUGS (2)
  1. PROZAC [Suspect]
     Dosage: 1 D/F, DAILY (1/D), ORAL
     Route: 048
     Dates: start: 20050615, end: 20060410
  2. COVERSYL (PERINDOPRIL) [Concomitant]

REACTIONS (9)
  - ABDOMINAL PAIN [None]
  - CONFUSIONAL STATE [None]
  - DEHYDRATION [None]
  - HYPERKALAEMIA [None]
  - POLYURIA [None]
  - RENAL FAILURE ACUTE [None]
  - SOMNOLENCE [None]
  - URINARY RETENTION [None]
  - VOMITING [None]
